FAERS Safety Report 6298957-X (Version None)
Quarter: 2009Q3

REPORT INFORMATION
  Report Type: 
  Country: None (occurrence: None)
  Receive Date: 20090803
  Receipt Date: 20090722
  Transmission Date: 20100115
  Serious: No
  Sender: FDA-Public Use
  Company Number: 332110

PATIENT
  Age: 81 Year
  Sex: Female
  Weight: 58.06 kg

DRUGS (2)
  1. ROCURONIUM BROMIDE [Suspect]
     Indication: DRUG USE FOR UNKNOWN INDICATION
     Dosage: 30 MG, INTRAVENOUS
     Route: 042
     Dates: start: 20090630, end: 20090630
  2. NEOSTIGMINE) [Concomitant]
     Route: 042

REACTIONS (4)
  - COUGH [None]
  - DELAYED RECOVERY FROM ANAESTHESIA [None]
  - DRUG EFFECT INCREASED [None]
  - DYSPNOEA [None]
